FAERS Safety Report 16679783 (Version 1)
Quarter: 2019Q3

REPORT INFORMATION
  Report Type: Spontaneous
  Country: US (occurrence: US)
  Receive Date: 20190807
  Receipt Date: 20190807
  Transmission Date: 20191004
  Serious: No
  Sender: FDA-Public Use
  Company Number: US-BAYER-2019-145094

PATIENT
  Age: 15 Year
  Sex: Male

DRUGS (1)
  1. ALEVE [Suspect]
     Active Substance: NAPROXEN SODIUM
     Indication: HEADACHE
     Dosage: 4 DF
     Route: 048
     Dates: start: 20190802

REACTIONS (4)
  - Abnormal behaviour [Not Recovered/Not Resolved]
  - Confusional state [Unknown]
  - Incorrect dosage administered [Not Recovered/Not Resolved]
  - Vomiting [Unknown]

NARRATIVE: CASE EVENT DATE: 20190802
